FAERS Safety Report 22888899 (Version 5)
Quarter: 2024Q3

REPORT INFORMATION
  Report Type: Report from Study
  Country: US (occurrence: US)
  Receive Date: 20230831
  Receipt Date: 20240717
  Transmission Date: 20241017
  Serious: No
  Sender: NOVARTIS
  Company Number: US-002147023-NVSC2023US189160

PATIENT
  Age: 14 Year
  Sex: Female

DRUGS (3)
  1. ILARIS [Suspect]
     Active Substance: CANAKINUMAB
     Indication: Juvenile idiopathic arthritis
     Dosage: 150 MG, OTHER (EVERY 4 WEEKS)
     Route: 058
     Dates: start: 20200126
  2. ILARIS [Suspect]
     Active Substance: CANAKINUMAB
     Dosage: UNK (LATE ADMINISTRATION)
     Route: 065
     Dates: start: 20230828
  3. ILARIS [Suspect]
     Active Substance: CANAKINUMAB
     Dosage: 150 MG, OTHER (EVERY 5 WEEKS)
     Route: 058

REACTIONS (1)
  - Inappropriate schedule of product administration [Recovered/Resolved]

NARRATIVE: CASE EVENT DATE: 20230828
